FAERS Safety Report 14398577 (Version 2)
Quarter: 2018Q1

REPORT INFORMATION
  Report Type: Report from Study
  Country: None (occurrence: CA)
  Receive Date: 20180117
  Receipt Date: 20180320
  Transmission Date: 20180509
  Serious: Yes (Hospitalization)
  Sender: FDA-Public Use
  Company Number: CA-ABBVIE-18K-028-2224275-00

PATIENT
  Age: 39 Year
  Sex: Male

DRUGS (2)
  1. HUMIRA [Suspect]
     Active Substance: ADALIMUMAB
     Route: 058
     Dates: start: 2017, end: 201802
  2. HUMIRA [Suspect]
     Active Substance: ADALIMUMAB
     Indication: BEHCET^S SYNDROME
     Route: 058
     Dates: start: 20121120, end: 2017

REACTIONS (5)
  - Laboratory test abnormal [Unknown]
  - Diplegia [Not Recovered/Not Resolved]
  - Behcet^s syndrome [Unknown]
  - Monoplegia [Not Recovered/Not Resolved]
  - Behcet^s syndrome [Recovered/Resolved]

NARRATIVE: CASE EVENT DATE: 201710
